FAERS Safety Report 23907157 (Version 1)
Quarter: 2024Q2

REPORT INFORMATION
  Report Type: Spontaneous
  Country: JP (occurrence: JP)
  Receive Date: 20240528
  Receipt Date: 20240528
  Transmission Date: 20240716
  Serious: Yes (Other)
  Sender: FDA-Public Use
  Company Number: JP-MLMSERVICE-20200130-2141754-1

PATIENT
  Age: 41 Year
  Sex: Female

DRUGS (1)
  1. IBUPROFEN [Suspect]
     Active Substance: IBUPROFEN
     Indication: Nasopharyngitis
     Dosage: UNK
     Route: 065

REACTIONS (4)
  - Fixed eruption [Recovered/Resolved]
  - Lip blister [Recovered/Resolved]
  - Dermatitis bullous [Recovered/Resolved]
  - Lip pain [Unknown]
